FAERS Safety Report 7975034 (Version 4)
Quarter: 2012Q4

REPORT INFORMATION
  Report Type: 
  Country: US (occurrence: US)
  Receive Date: 20110606
  Receipt Date: 20120924
  Transmission Date: 20130627
  Serious: Yes (Life-Threatening, Hospitalization)
  Sender: FDA-Public Use
  Company Number: US-BAYER-2011-048027

PATIENT
  Age: 19 Year
  Sex: Female
  Weight: 54 kg

DRUGS (7)
  1. YAZ [Suspect]
     Indication: ORAL CONTRACEPTION
     Dosage: UNK
     Route: 048
     Dates: start: 200812, end: 20090424
  2. YAZ [Suspect]
     Indication: ACNE
  3. SERTRALINE [Concomitant]
     Indication: ANXIETY
     Dosage: 50 mg, day
     Route: 048
     Dates: start: 20081229, end: 20100402
  4. SERTRALINE [Concomitant]
     Indication: DEPRESSION
  5. ALBUTEROL [Concomitant]
     Dosage: 2 puffs 4 to 5 [times]/day, Noted 12-Feb-2009
     Route: 045
  6. Z-PAK [Concomitant]
     Dosage: times] 5 days, Noted 12-Feb-2009
  7. ZOLOFT [Concomitant]

REACTIONS (11)
  - Pulmonary embolism [None]
  - Injury [None]
  - Pain [None]
  - Emotional distress [None]
  - Anhedonia [None]
  - Fear [None]
  - Traumatic lung injury [None]
  - Musculoskeletal chest pain [None]
  - Chest discomfort [None]
  - Anxiety [None]
  - Chest pain [None]
